FAERS Safety Report 6379765-8 (Version None)
Quarter: 2009Q3

REPORT INFORMATION
  Report Type: 
  Country: None (occurrence: None)
  Receive Date: 20090924
  Receipt Date: 20090924
  Transmission Date: 20100115
  Serious: No
  Sender: FDA-Public Use
  Company Number: None

PATIENT
  Age: 88 Year
  Sex: Female
  Weight: 45.8133 kg

DRUGS (5)
  1. CLOBETASOL PROPIONATE [Suspect]
     Indication: DERMATITIS
     Dosage: APPLY TO SCALP 1X DAILY
     Route: 061
     Dates: start: 20090719, end: 20090916
  2. SPIRIVA [Concomitant]
  3. PROAIR HFA [Concomitant]
  4. PREDNISONE [Concomitant]
  5. NON-PRESCRIPTION MEDICATION INCLUDE ADVIL [Concomitant]

REACTIONS (10)
  - DERMATITIS [None]
  - DRUG INEFFECTIVE [None]
  - DRUG PRESCRIBING ERROR [None]
  - INCORRECT DOSE ADMINISTERED [None]
  - INCORRECT DRUG ADMINISTRATION DURATION [None]
  - PRODUCT MEASURED POTENCY ISSUE [None]
  - PRURITUS [None]
  - SKIN EXFOLIATION [None]
  - SKIN ULCER [None]
  - TREATMENT FAILURE [None]
